FAERS Safety Report 4470673-6 (Version None)
Quarter: 2004Q4

REPORT INFORMATION
  Report Type: 
  Country: None (occurrence: None)
  Receive Date: 20041006
  Receipt Date: 20040922
  Transmission Date: 20050328
  Serious: Yes (Other)
  Sender: FDA-Public Use
  Company Number: 209121

PATIENT
  Age: 45 Year
  Sex: Female

DRUGS (4)
  1. HERCEPTIN [Suspect]
     Indication: BREAST CANCER METASTATIC
     Dosage: UNK, Q3W; INTRAVENOUS
     Route: 042
     Dates: start: 20020101
  2. TAXOTERE [Concomitant]
  3. CISPLATIN [Concomitant]
  4. ANTINEOPLASTIC AGENT NOS [Concomitant]

REACTIONS (3)
  - COLITIS ULCERATIVE [None]
  - ILEITIS [None]
  - LYMPHOID TISSUE HYPERPLASIA [None]
